FAERS Safety Report 15020814 (Version 2)
Quarter: 2018Q3

REPORT INFORMATION
  Report Type: Spontaneous
  Country: PR (occurrence: PR)
  Receive Date: 20180618
  Receipt Date: 20180702
  Transmission Date: 20181010
  Serious: No
  Sender: FDA-Public Use
  Company Number: PR-PFIZER INC-2018243358

PATIENT
  Age: 59 Year
  Sex: Female
  Weight: 70.76 kg

DRUGS (2)
  1. XELJANZ XR [Suspect]
     Active Substance: TOFACITINIB CITRATE
     Indication: NASOPHARYNGITIS
     Dosage: 11 MG, 1X/DAY
     Dates: start: 201805
  2. XELJANZ XR [Suspect]
     Active Substance: TOFACITINIB CITRATE
     Indication: FATIGUE

REACTIONS (2)
  - Drug ineffective for unapproved indication [Not Recovered/Not Resolved]
  - Cough [Unknown]
